FAERS Safety Report 7296511-4 (Version None)
Quarter: 2011Q1

REPORT INFORMATION
  Report Type: 
  Country: None (occurrence: None)
  Receive Date: 20110216
  Receipt Date: 20110203
  Transmission Date: 20110831
  Serious: Yes (Hospitalization)
  Sender: FDA-Public Use
  Company Number: PHHY2010GB25406

PATIENT
  Sex: Male

DRUGS (1)
  1. CLOZARIL [Suspect]
     Indication: SCHIZOPHRENIA
     Dosage: UNK
     Dates: start: 19950509

REACTIONS (11)
  - LYMPHOCYTE COUNT DECREASED [None]
  - PNEUMONIA [None]
  - PLATELET COUNT DECREASED [None]
  - HAEMATOCRIT DECREASED [None]
  - WHITE BLOOD CELL COUNT INCREASED [None]
  - SEDATION [None]
  - RED BLOOD CELL COUNT DECREASED [None]
  - NEUTROPHIL COUNT DECREASED [None]
  - VARICELLA [None]
  - MONOCYTE COUNT INCREASED [None]
  - HAEMOGLOBIN DECREASED [None]
